FAERS Safety Report 9973442 (Version 1)
Quarter: 2014Q1

REPORT INFORMATION
  Report Type: Spontaneous
  Country: US (occurrence: None)
  Receive Date: 20140128
  Receipt Date: 20140128
  Transmission Date: 20141002
  Serious: Yes (Hospitalization)
  Sender: FDA-Public Use
  Company Number: A-US2012-75592

PATIENT
  Age: 50 Year
  Sex: Female

DRUGS (3)
  1. TRACLEER [Suspect]
     Indication: PULMONARY ARTERIAL HYPERTENSION
     Route: 048
  2. PLAVIX (CLOPIDOGREL BISULFATE) (CLOPIDOGREL BISULFATE) [Concomitant]
  3. BUMETANIDE (BUMETANIDE) [Concomitant]

REACTIONS (7)
  - Fluid retention [None]
  - Dyspnoea [None]
  - Chest discomfort [None]
  - Cold sweat [None]
  - Dizziness [None]
  - Abdominal distension [None]
  - Weight increased [None]
